FAERS Safety Report 9235634 (Version 1)
Quarter: 2013Q2

REPORT INFORMATION
  Report Type: Spontaneous
  Country: US (occurrence: None)
  Receive Date: 20130416
  Receipt Date: 20130416
  Transmission Date: 20140414
  Serious: Yes (Hospitalization)
  Sender: FDA-Public Use
  Company Number: None

PATIENT
  Age: 43 Year
  Sex: Female
  Weight: 66.21 kg

DRUGS (3)
  1. BLEOMYCIN [Suspect]
  2. CISPLATIN [Suspect]
  3. ETOPOSIDE (VP-16) [Suspect]

REACTIONS (5)
  - Headache [None]
  - Nausea [None]
  - Vomiting [None]
  - Neutropenia [None]
  - Body temperature increased [None]
